FAERS Safety Report 16145956 (Version 1)
Quarter: 2019Q2

REPORT INFORMATION
  Report Type: Spontaneous
  Country: US (occurrence: US)
  Receive Date: 20190402
  Receipt Date: 20190402
  Transmission Date: 20190711
  Serious: No
  Sender: FDA-Public Use
  Company Number: US-APOTEX-2019AP009177

PATIENT
  Age: 42 Year
  Sex: Male

DRUGS (2)
  1. BRIGATINIB [Concomitant]
     Active Substance: BRIGATINIB
     Indication: NON-SMALL CELL LUNG CANCER STAGE IV
     Dosage: 240 MG, QD
     Route: 065
     Dates: start: 201207
  2. LEVETIRACETAM. [Suspect]
     Active Substance: LEVETIRACETAM
     Indication: SEIZURE
     Dosage: 500 MG, BID
     Route: 065
     Dates: start: 201612

REACTIONS (1)
  - Adverse event [Unknown]
